FAERS Safety Report 9758394 (Version 1)
Quarter: 2013Q4

REPORT INFORMATION
  Report Type: Spontaneous
  Country: US (occurrence: None)
  Receive Date: 20131213
  Receipt Date: 20131213
  Transmission Date: 20140711
  Serious: Yes (Other)
  Sender: FDA-Public Use
  Company Number: None

PATIENT
  Age: 70 Year
  Sex: Male

DRUGS (1)
  1. TESTOPEL [Suspect]
     Indication: TESTICULAR FAILURE
     Dosage: IMPLANT
     Dates: start: 20130502, end: 20131024

REACTIONS (2)
  - Thrombosis [None]
  - Swelling [None]
